FAERS Safety Report 6730841-7 (Version None)
Quarter: 2010Q2

REPORT INFORMATION
  Report Type: 
  Country: None (occurrence: None)
  Receive Date: 20100518
  Receipt Date: 20100504
  Transmission Date: 20101027
  Serious: Yes (Hospitalization, Other)
  Sender: FDA-Public Use
  Company Number: PHHY2010GB14687

PATIENT
  Sex: Male

DRUGS (7)
  1. CLOZARIL [Suspect]
     Indication: SCHIZOPHRENIA
     Dosage: UNK
     Dates: start: 19970421
  2. CLOZARIL [Suspect]
     Dosage: 900 MG/DAY
     Route: 048
  3. CLOZARIL [Suspect]
     Dosage: TWICE THE PRESCRIBED DOSE
  4. VENLAFAXINE [Concomitant]
     Indication: DEPRESSION
     Dosage: 225 MG, UNK
     Route: 048
     Dates: start: 20100127
  5. DIAZEPAM [Concomitant]
     Dosage: 10 MG, UNK
     Route: 048
     Dates: start: 20100127
  6. RISPERIDONE [Concomitant]
     Indication: PSYCHOTIC DISORDER
     Dosage: 6 MG, UNK
     Route: 048
     Dates: start: 20100127
  7. LAMOTRIGINE [Concomitant]
     Indication: PSYCHOTIC DISORDER
     Dosage: 450 MG, UNK
     Route: 048
     Dates: start: 20100127

REACTIONS (7)
  - ANTIPSYCHOTIC DRUG LEVEL INCREASED [None]
  - COMA SCALE ABNORMAL [None]
  - DRUG TOXICITY [None]
  - DYSARTHRIA [None]
  - HYPOTENSION [None]
  - OVERDOSE [None]
  - SOMNOLENCE [None]
